FAERS Safety Report 16530131 (Version 2)
Quarter: 2019Q3

REPORT INFORMATION
  Report Type: Spontaneous
  Country: CH (occurrence: CH)
  Receive Date: 20190704
  Receipt Date: 20190802
  Transmission Date: 20191004
  Serious: Yes (Hospitalization)
  Sender: FDA-Public Use
  Company Number: CH-009507513-1906CHE010116

PATIENT
  Age: 37 Year
  Sex: Male
  Weight: 82 kg

DRUGS (4)
  1. KEPPRA [Suspect]
     Active Substance: LEVETIRACETAM
     Indication: EPILEPSY
     Dosage: 1000 MG, Q12H
     Route: 048
     Dates: start: 20190421, end: 20190605
  2. TEMODAL [Suspect]
     Active Substance: TEMOZOLOMIDE
     Indication: GLIOBLASTOMA
     Dosage: 170 MILLIGRAM, QD
     Dates: start: 20190527, end: 20190605
  3. BACTRIM [Suspect]
     Active Substance: SULFAMETHOXAZOLE\TRIMETHOPRIM
     Indication: ANTIFUNGAL PROPHYLAXIS
     Dosage: 960 MILLIGRAM, QOD
     Route: 048
     Dates: start: 20190527, end: 20190605
  4. TEMODAL [Suspect]
     Active Substance: TEMOZOLOMIDE
     Dosage: 170 MG, QD
     Dates: start: 20190615

REACTIONS (3)
  - Generalised tonic-clonic seizure [Recovered/Resolved]
  - Rhabdomyolysis [Recovered/Resolved]
  - Drug-induced liver injury [Recovered/Resolved]

NARRATIVE: CASE EVENT DATE: 20190605
